FAERS Safety Report 20846723 (Version 5)
Quarter: 2022Q2

REPORT INFORMATION
  Report Type: Report from Study
  Country: FR (occurrence: FR)
  Receive Date: 20220519
  Receipt Date: 20220624
  Transmission Date: 20220721
  Serious: Yes (Death, Hospitalization, Other)
  Sender: FDA-Public Use
  Company Number: FR-ABBVIE-22K-056-4398744-00

PATIENT
  Age: 76 Year
  Sex: Female

DRUGS (2)
  1. CARBIDOPA\LEVODOPA [Suspect]
     Active Substance: CARBIDOPA\LEVODOPA
     Indication: Parkinson^s disease
     Route: 050
     Dates: start: 201910
  2. CARBIDOPA\LEVODOPA [Suspect]
     Active Substance: CARBIDOPA\LEVODOPA

REACTIONS (4)
  - General physical health deterioration [Fatal]
  - Peritonitis [Fatal]
  - Lung disorder [Not Recovered/Not Resolved]
  - Enteral nutrition [Recovered/Resolved]

NARRATIVE: CASE EVENT DATE: 20220501
